FAERS Safety Report 10642006 (Version 2)
Quarter: 2014Q4

REPORT INFORMATION
  Report Type: Report from Study
  Country: MX (occurrence: MX)
  Receive Date: 20141209
  Receipt Date: 20141209
  Transmission Date: 20150529
  Serious: Yes (Hospitalization, Other)
  Sender: FDA-Public Use
  Company Number: PHHY2013MX074936

PATIENT
  Age: 53 Year
  Sex: Male
  Weight: 103 kg

DRUGS (3)
  1. CO-DIOVAN [Suspect]
     Active Substance: HYDROCHLOROTHIAZIDE\VALSARTAN
     Dosage: 1 DF, (320/12.5 MG) DAILY
     Route: 048
     Dates: start: 20130710
  2. CO-DIOVAN [Suspect]
     Active Substance: HYDROCHLOROTHIAZIDE\VALSARTAN
     Indication: HYPERTENSION
     Dosage: 2 DF, (160/12.5 MG) DAILY
     Route: 048
     Dates: start: 201203, end: 201209
  3. CO-DIOVAN [Suspect]
     Active Substance: HYDROCHLOROTHIAZIDE\VALSARTAN
     Dosage: 1 DF, (160/12.5 MG) DAILY
     Route: 048
     Dates: start: 201209, end: 201306

REACTIONS (9)
  - Drug intolerance [Unknown]
  - Renal disorder [Unknown]
  - Pyrexia [Recovered/Resolved]
  - Calculus bladder [Not Recovered/Not Resolved]
  - Malaise [Recovered/Resolved]
  - Somnolence [Unknown]
  - Nephrolithiasis [Not Recovered/Not Resolved]
  - Blood pressure inadequately controlled [Not Recovered/Not Resolved]
  - Vomiting [Recovered/Resolved]

NARRATIVE: CASE EVENT DATE: 201306
